FAERS Safety Report 25831047 (Version 1)
Quarter: 2025Q3

REPORT INFORMATION
  Report Type: Spontaneous
  Country: GB (occurrence: GB)
  Receive Date: 20250922
  Receipt Date: 20250922
  Transmission Date: 20251020
  Serious: Yes (Other)
  Sender: AUROBINDO
  Company Number: GB-MHRA-MED-202509091222534270-TNBFC

PATIENT
  Age: 57 Year
  Sex: Male
  Weight: 66 kg

DRUGS (1)
  1. TERBINAFINE [Suspect]
     Active Substance: TERBINAFINE
     Indication: Fungal infection
     Route: 065
     Dates: start: 20250905, end: 20250907

REACTIONS (2)
  - Swelling face [Recovered/Resolved with Sequelae]
  - Lip swelling [Recovered/Resolved with Sequelae]

NARRATIVE: CASE EVENT DATE: 20250907
